FAERS Safety Report 11123892 (Version 1)
Quarter: 2015Q2

REPORT INFORMATION
  Report Type: Spontaneous
  Country: US (occurrence: US)
  Receive Date: 20150520
  Receipt Date: 20150520
  Transmission Date: 20150821
  Serious: No
  Sender: FDA-Public Use
  Company Number: US-TEVA-556629USA

PATIENT
  Sex: Female

DRUGS (1)
  1. NORETHINDRONE. [Suspect]
     Active Substance: NORETHINDRONE
     Dates: start: 20150409

REACTIONS (6)
  - Pain [Unknown]
  - Muscle spasms [Unknown]
  - Chills [Unknown]
  - Pyrexia [Unknown]
  - Vision blurred [Unknown]
  - Dizziness [Unknown]
